FAERS Safety Report 6082372-8 (Version None)
Quarter: 2009Q1

REPORT INFORMATION
  Report Type: 
  Country: None (occurrence: None)
  Receive Date: 20090130
  Receipt Date: 20080312
  Transmission Date: 20090719
  Serious: Yes (Life-Threatening, Hospitalization)
  Sender: FDA-Public Use
  Company Number: 8030754

PATIENT
  Age: 29 Year
  Sex: Male

DRUGS (1)
  1. KEPPRA [Suspect]
     Indication: GRAND MAL CONVULSION
     Dosage: PO
     Route: 048
     Dates: start: 20060101, end: 20080311

REACTIONS (3)
  - SPINAL FRACTURE [None]
  - SUICIDAL IDEATION [None]
  - SUICIDE ATTEMPT [None]
